FAERS Safety Report 9978005 (Version 1)
Quarter: 2014Q1

REPORT INFORMATION
  Report Type: Report from Study
  Country: US (occurrence: US)
  Receive Date: 20140306
  Receipt Date: 20140306
  Transmission Date: 20141002
  Serious: No
  Sender: FDA-Public Use
  Company Number: US-ABBVIE-13P-163-1052620-00

PATIENT
  Age: 21 Year
  Sex: Female
  Weight: 98.97 kg

DRUGS (10)
  1. LUPRON DEPOT [Suspect]
     Indication: ENDOMETRIOSIS
     Dates: start: 201301
  2. METFORMIN [Concomitant]
     Indication: DIABETES MELLITUS
  3. GLIPIZIDE [Concomitant]
     Indication: DIABETES MELLITUS
  4. FAMOTIDINE [Concomitant]
     Indication: DYSPEPSIA
  5. DEPAKOTE [Concomitant]
     Indication: DEPRESSION
  6. GABAPENTIN [Concomitant]
     Indication: RESTLESS LEGS SYNDROME
  7. PROLAIR [Concomitant]
     Indication: ASTHMA
  8. PROVENTIL [Concomitant]
     Indication: ASTHMA
  9. XANAX [Concomitant]
     Indication: ANXIETY
  10. KLONOPIN [Concomitant]
     Indication: DEPRESSION

REACTIONS (6)
  - Sexual dysfunction [Not Recovered/Not Resolved]
  - Abdominal discomfort [Not Recovered/Not Resolved]
  - Dyspnoea [Not Recovered/Not Resolved]
  - Migraine [Not Recovered/Not Resolved]
  - Dizziness [Not Recovered/Not Resolved]
  - Decreased appetite [Not Recovered/Not Resolved]
